FAERS Safety Report 25891377 (Version 2)
Quarter: 2025Q4

REPORT INFORMATION
  Report Type: Spontaneous
  Country: US (occurrence: US)
  Receive Date: 20251007
  Receipt Date: 20251023
  Transmission Date: 20260118
  Serious: No
  Sender: Haleon PLC
  Company Number: US-HALEON-2265664

PATIENT
  Age: 50 Year
  Sex: Male

DRUGS (2)
  1. NICORETTE MINT [Suspect]
     Active Substance: NICOTINE
     Indication: Ex-tobacco user
  2. NICORETTE PEPPERMINT [Suspect]
     Active Substance: NICOTINE
     Indication: Ex-tobacco user
     Dates: start: 20250927

REACTIONS (3)
  - Drug effect less than expected [Unknown]
  - Incorrect dose administered [Unknown]
  - Product solubility abnormal [Unknown]
